FAERS Safety Report 14494868 (Version 1)
Quarter: 2018Q1

REPORT INFORMATION
  Report Type: Spontaneous
  Country: DE (occurrence: DE)
  Receive Date: 20180206
  Receipt Date: 20180206
  Transmission Date: 20180509
  Serious: Yes (Hospitalization, Other)
  Sender: FDA-Public Use
  Company Number: DE-MYLANLABS-2018M1007313

PATIENT
  Age: 57 Year
  Sex: Male

DRUGS (10)
  1. TAMSULOSIN [Concomitant]
     Active Substance: TAMSULOSIN
     Indication: PRODUCT USED FOR UNKNOWN INDICATION
     Dosage: 0.4 MG, UNK
     Dates: start: 20151030
  2. SERTRALINE [Suspect]
     Active Substance: SERTRALINE HYDROCHLORIDE
     Indication: PRODUCT USED FOR UNKNOWN INDICATION
     Dosage: 100 MG, UNK
     Dates: start: 201410
  3. ZYPREXA [Interacting]
     Active Substance: OLANZAPINE
     Dosage: 30 MG, UNK
     Dates: start: 20151125
  4. ZYPREXA [Interacting]
     Active Substance: OLANZAPINE
     Dosage: 35 MG, UNK
     Dates: start: 20151031, end: 20151106
  5. RISPERDAL [Concomitant]
     Active Substance: RISPERIDONE
     Dosage: 6 MG, UNK
     Dates: start: 20151114
  6. ZYPREXA [Interacting]
     Active Substance: OLANZAPINE
     Dosage: 30 MG, UNK
     Dates: start: 201410, end: 20151030
  7. RISPERDAL [Concomitant]
     Active Substance: RISPERIDONE
     Indication: PRODUCT USED FOR UNKNOWN INDICATION
     Dosage: 5 MG, UNK
     Dates: start: 200804
  8. ZYPREXA [Interacting]
     Active Substance: OLANZAPINE
     Indication: PRODUCT USED FOR UNKNOWN INDICATION
     Dosage: 20 MG, UNK
     Dates: start: 201401
  9. ZYPREXA [Interacting]
     Active Substance: OLANZAPINE
     Dosage: 40 MG, UNK
     Dates: start: 20151107, end: 20151113
  10. ZYPREXA [Interacting]
     Active Substance: OLANZAPINE
     Dosage: 35 MG, UNK
     Dates: start: 20151114, end: 20151124

REACTIONS (1)
  - Pollakiuria [Not Recovered/Not Resolved]

NARRATIVE: CASE EVENT DATE: 20171029
